FAERS Safety Report 6884815-6 (Version None)
Quarter: 2010Q3

REPORT INFORMATION
  Report Type: 
  Country: None (occurrence: None)
  Receive Date: 20100729
  Receipt Date: 20071101
  Transmission Date: 20110219
  Serious: No
  Sender: FDA-Public Use
  Company Number: US-PFIZER INC-2007060615

PATIENT
  Age: 57 Year
  Sex: Female
  Weight: 70.31 kg

DRUGS (1)
  1. CELEBREX [Suspect]
     Dates: start: 20060829, end: 20060929

REACTIONS (1)
  - PETECHIAE [None]
